FAERS Safety Report 5671878-9 (Version None)
Quarter: 2008Q1

REPORT INFORMATION
  Report Type: 
  Country: None (occurrence: None)
  Receive Date: 20080317
  Receipt Date: 20080317
  Transmission Date: 20080703
  Serious: Yes (Hospitalization)
  Sender: FDA-Public Use
  Company Number: None

PATIENT
  Age: 80 Year
  Sex: Male
  Weight: 84 kg

DRUGS (1)
  1. LYRICA [Suspect]

REACTIONS (5)
  - ATAXIA [None]
  - CONFUSIONAL STATE [None]
  - DIPLOPIA [None]
  - DYSARTHRIA [None]
  - SOMNOLENCE [None]
